FAERS Safety Report 24716167 (Version 2)
Quarter: 2025Q3

REPORT INFORMATION
  Report Type: Report from Study
  Country: US (occurrence: US)
  Receive Date: 20241210
  Receipt Date: 20250802
  Transmission Date: 20251021
  Serious: Yes (Other)
  Sender: ALEXION PHARMACEUTICALS
  Company Number: US-AstraZeneca-2024A175108

PATIENT
  Sex: Female

DRUGS (2)
  1. OLAPARIB [Suspect]
     Active Substance: OLAPARIB
     Indication: Breast cancer female
     Dosage: 200 MILLIGRAM, BID
     Dates: start: 202404
  2. OLAPARIB [Suspect]
     Active Substance: OLAPARIB
     Indication: Breast cancer female

REACTIONS (1)
  - Neuropathy peripheral [Unknown]
